FAERS Safety Report 10449208 (Version 1)
Quarter: 2014Q3

REPORT INFORMATION
  Report Type: Spontaneous
  Country: US (occurrence: US)
  Receive Date: 20140912
  Receipt Date: 20140912
  Transmission Date: 20150326
  Serious: No
  Sender: FDA-Public Use
  Company Number: US-SHIRE-US201405852

PATIENT
  Sex: Female
  Weight: 127 kg

DRUGS (1)
  1. PENTASA [Suspect]
     Active Substance: MESALAMINE
     Indication: CROHN^S DISEASE
     Dosage: 1000 MG (TWO 500 MG CAPSULES), 4X/DAY:QID
     Route: 048
     Dates: start: 2009, end: 201407

REACTIONS (2)
  - No adverse event [Recovered/Resolved]
  - Off label use [Recovered/Resolved]

NARRATIVE: CASE EVENT DATE: 2009
